FAERS Safety Report 5102612-9 (Version None)
Quarter: 2006Q3

REPORT INFORMATION
  Report Type: 
  Country: None (occurrence: None)
  Receive Date: 20060907
  Receipt Date: 20060830
  Transmission Date: 20061208
  Serious: Yes (Other)
  Sender: FDA-Public Use
  Company Number: 2006100012

PATIENT
  Age: 43 Year
  Sex: Male

DRUGS (4)
  1. ZELDOX                               (ZIPRASIDONE) [Suspect]
     Indication: SCHIZOPHRENIA
     Dosage: 40 MG (40 MG, 1 IN 1 D), ORAL
     Route: 048
     Dates: start: 20060810, end: 20060815
  2. HALOPERIDOL [Concomitant]
  3. DIAZEPAM [Concomitant]
  4. CARBAZEPINE    (CARBAZEPINE) [Concomitant]

REACTIONS (4)
  - ASTHENIA [None]
  - BLOOD ALKALINE PHOSPHATASE INCREASED [None]
  - FALL [None]
  - HEPATIC ENZYME INCREASED [None]
